FAERS Safety Report 20453902 (Version 1)
Quarter: 2022Q1

REPORT INFORMATION
  Report Type: Spontaneous
  Country: US (occurrence: None)
  Receive Date: 20220209
  Receipt Date: 20220209
  Transmission Date: 20220423
  Serious: Yes (Other)
  Sender: FDA-Public Use
  Company Number: None

PATIENT
  Age: 72 Year
  Sex: Male
  Weight: 114.3 kg

DRUGS (8)
  1. MOLNUPIRAVIR [Suspect]
     Active Substance: MOLNUPIRAVIR
  2. levetiracetam 1,000 mg tablet [Concomitant]
  3. diltiazem CD 120 mg capsule, extended release 24 hr [Concomitant]
  4. ProAir HFA 90 mcg/actuation inhaler [Concomitant]
  5. mometasone 50 mcg/actuation nasal spray [Concomitant]
  6. azelastine 137 mcg (0.1%) nasal spray [Concomitant]
  7. digoxin 125 mcg (0.125 mg) tablet [Concomitant]
  8. ELIQUIS [Concomitant]
     Active Substance: APIXABAN

REACTIONS (2)
  - Seizure [None]
  - Therapy cessation [None]

NARRATIVE: CASE EVENT DATE: 20220127
